FAERS Safety Report 22308413 (Version 1)
Quarter: 2023Q2

REPORT INFORMATION
  Report Type: Spontaneous
  Country: US (occurrence: None)
  Receive Date: 20230511
  Receipt Date: 20230511
  Transmission Date: 20230721
  Serious: No
  Sender: FDA-Public Use
  Company Number: US-ROCHE-3208521

PATIENT
  Age: 45 Year
  Sex: Female

DRUGS (1)
  1. OCREVUS [Suspect]
     Active Substance: OCRELIZUMAB
     Indication: Multiple sclerosis
     Route: 042
     Dates: start: 202103, end: 202205

REACTIONS (4)
  - Skin reaction [Unknown]
  - Arthralgia [Unknown]
  - Colitis [Unknown]
  - Back pain [Unknown]

NARRATIVE: CASE EVENT DATE: 20221026
